FAERS Safety Report 13078853 (Version 2)
Quarter: 2018Q1

REPORT INFORMATION
  Report Type: Spontaneous
  Country: GB (occurrence: GB)
  Receive Date: 20170102
  Receipt Date: 20180131
  Transmission Date: 20180508
  Serious: Yes (Hospitalization)
  Sender: FDA-Public Use
  Company Number: GB-MYLANLABS-2016M1039626

PATIENT
  Age: 71 Year
  Sex: Male

DRUGS (5)
  1. HYOSCINE HYDROBROMIDE [Concomitant]
     Active Substance: SCOPOLAMINE
     Indication: SALIVARY HYPERSECRETION
     Dosage: 300 MG, PRN
     Route: 048
  2. MIRTAZAPINE. [Concomitant]
     Active Substance: MIRTAZAPINE
     Indication: DEPRESSED MOOD
     Dosage: 30 MG, QD
     Route: 048
  3. CLOZARIL [Suspect]
     Active Substance: CLOZAPINE
     Indication: SCHIZOPHRENIA
     Dosage: UNK
     Route: 048
     Dates: start: 20160815, end: 20160901
  4. CLOZARIL [Suspect]
     Active Substance: CLOZAPINE
     Dosage: 75 MG, AM
     Route: 048
     Dates: start: 20160817, end: 2016
  5. CLOZARIL [Suspect]
     Active Substance: CLOZAPINE
     Dosage: 125 MG, PM
     Route: 048
     Dates: start: 20160817, end: 2016

REACTIONS (6)
  - Dizziness [Unknown]
  - Lethargy [Unknown]
  - Treatment noncompliance [Unknown]
  - Lower respiratory tract infection [Recovered/Resolved]
  - Fatigue [Unknown]
  - Orthostatic hypotension [Unknown]

NARRATIVE: CASE EVENT DATE: 2016
